FAERS Safety Report 14898826 (Version 1)
Quarter: 2018Q2

REPORT INFORMATION
  Report Type: Spontaneous
  Country: US (occurrence: US)
  Receive Date: 20180427
  Receipt Date: 20180427
  Transmission Date: 20180711
  Serious: Yes (Other)
  Sender: FDA-Public Use
  Company Number: None

PATIENT
  Age: 24 Year
  Sex: Male
  Weight: 86.18 kg

DRUGS (1)
  1. FLUOXETINE [Suspect]
     Active Substance: FLUOXETINE HYDROCHLORIDE
     Indication: DEPRESSION
     Route: 048
     Dates: start: 20180302, end: 20180321

REACTIONS (5)
  - Suicidal ideation [None]
  - Muscular weakness [None]
  - Sedation [None]
  - Diarrhoea [None]
  - Feeling cold [None]

NARRATIVE: CASE EVENT DATE: 20180321
